FAERS Safety Report 10161593 (Version 2)
Quarter: 2014Q2

REPORT INFORMATION
  Report Type: Spontaneous
  Country: US (occurrence: US)
  Receive Date: 20140509
  Receipt Date: 20140509
  Transmission Date: 20141212
  Serious: Yes (Life-Threatening, Hospitalization, Disabling, Other)
  Sender: FDA-Public Use
  Company Number: US-ROCHE-1385322

PATIENT
  Age: 61 Year
  Sex: Female
  Weight: 108.96 kg

DRUGS (22)
  1. PERJETA [Suspect]
     Indication: BREAST CANCER
     Dosage: CYCLE 1
     Route: 042
     Dates: start: 20131219
  2. RITUXAN [Suspect]
     Indication: BREAST CANCER
     Route: 042
     Dates: start: 20131219
  3. HERCEPTIN [Suspect]
     Indication: BREAST CANCER
     Dosage: CYCLE 1
     Route: 042
     Dates: start: 20131219
  4. HERCEPTIN [Suspect]
     Dosage: CYCLE 2
     Route: 042
     Dates: start: 20140114
  5. HERCEPTIN [Suspect]
     Route: 042
     Dates: start: 20140204
  6. HERCEPTIN [Suspect]
     Dosage: DAY 1 CYCLE 3
     Route: 042
     Dates: start: 20140320
  7. HERCEPTIN [Suspect]
     Dosage: DAY 1 CYCLE 4
     Route: 042
     Dates: start: 20140410
  8. HERCEPTIN [Suspect]
     Dosage: DAY 1 CYCLE 5
     Route: 042
     Dates: start: 20140501
  9. DOCETAXEL [Suspect]
     Indication: BREAST CANCER
     Dosage: CYCLE 1
     Route: 042
     Dates: start: 20131219
  10. DECADRON [Concomitant]
     Route: 042
     Dates: start: 20131212, end: 20140114
  11. CARBOPLATIN [Concomitant]
     Dosage: CYCLE 1
     Route: 065
     Dates: start: 20131219
  12. CARBOPLATIN [Concomitant]
     Dosage: CYCLE 2
     Route: 065
     Dates: start: 20140114
  13. NEULASTA [Concomitant]
     Route: 058
     Dates: start: 20131220, end: 20140115
  14. ANASTROZOLE [Concomitant]
     Route: 048
     Dates: start: 20140204
  15. ALPRAZOLAM [Concomitant]
     Route: 048
  16. HYDROCODONE/ACETAMINOPHEN [Concomitant]
     Route: 065
  17. LEVOTHYROXINE [Concomitant]
     Route: 048
  18. NADOLOL [Concomitant]
     Route: 065
  19. DIPHENOXYLATE W ATROPINE [Concomitant]
     Dosage: 2.5- 0.025 MG
     Route: 048
  20. PANTOPRAZOLE [Concomitant]
     Route: 048
  21. PROCHLORPERAZINE [Concomitant]
     Indication: NAUSEA
     Route: 048
  22. PROCHLORPERAZINE [Concomitant]
     Indication: VOMITING

REACTIONS (4)
  - Diarrhoea [Recovered/Resolved]
  - Diarrhoea [Recovered/Resolved]
  - Dehydration [Unknown]
  - Rash [Recovering/Resolving]
